FAERS Safety Report 9250669 (Version 1)
Quarter: 2013Q1

REPORT INFORMATION
  Report Type: Spontaneous
  Country: US (occurrence: None)
  Receive Date: 20130305
  Receipt Date: 20130305
  Transmission Date: 20140127
  Serious: Yes (Hospitalization)
  Sender: FDA-Public Use
  Company Number: 163-21880-12062953

PATIENT
  Age: 78 Year
  Sex: Female

DRUGS (1)
  1. REVLIMID(LENALIDOMIDE)(10 MILLIGRAM, CAPSULES) [Suspect]
     Indication: PLASMA CELL MYELOMA
     Dosage: QD X DAYS 1-14 Q 21 DAYS
     Route: 048
     Dates: start: 201202

REACTIONS (2)
  - Muscular weakness [None]
  - Pain in extremity [None]
